FAERS Safety Report 9856537 (Version 1)
Quarter: 2014Q1

REPORT INFORMATION
  Report Type: Spontaneous
  Country: US (occurrence: US)
  Receive Date: 20140130
  Receipt Date: 20140130
  Transmission Date: 20141002
  Serious: Yes (Hospitalization)
  Sender: FDA-Public Use
  Company Number: US-GILEAD-2014-0093296

PATIENT
  Sex: Female

DRUGS (1)
  1. LETAIRIS [Suspect]
     Indication: COR PULMONALE CHRONIC
     Dosage: 10 MG, QD
     Route: 048

REACTIONS (6)
  - Cough [Unknown]
  - Heart rate increased [Unknown]
  - Pyrexia [Unknown]
  - Diarrhoea [Unknown]
  - Unevaluable event [Unknown]
  - Nasopharyngitis [Unknown]
